FAERS Safety Report 23326972 (Version 3)
Quarter: 2024Q1

REPORT INFORMATION
  Report Type: Spontaneous
  Country: JP (occurrence: JP)
  Receive Date: 20231221
  Receipt Date: 20240129
  Transmission Date: 20240409
  Serious: Yes (Hospitalization, Other)
  Sender: FDA-Public Use
  Company Number: JP-AMNEAL PHARMACEUTICALS-2023-AMRX-04417

PATIENT

DRUGS (14)
  1. ONGENTYS [Suspect]
     Active Substance: OPICAPONE
     Indication: Parkinson^s disease
     Dosage: 25 MILLIGRAM, DAILY
     Route: 048
     Dates: start: 20220426, end: 20230821
  2. ROPINIROLE HYDROCHLORIDE [Suspect]
     Active Substance: ROPINIROLE HYDROCHLORIDE
     Indication: Parkinson^s disease
     Dosage: 8 MILLIGRAM, QD
     Route: 062
     Dates: end: 20230817
  3. BENSERAZIDE HYDROCHLORIDE\LEVODOPA [Suspect]
     Active Substance: BENSERAZIDE HYDROCHLORIDE\LEVODOPA
     Indication: Parkinson^s disease
     Dosage: 1 TABLETS, QID
     Route: 048
     Dates: end: 20230910
  4. BENSERAZIDE HYDROCHLORIDE\LEVODOPA [Suspect]
     Active Substance: BENSERAZIDE HYDROCHLORIDE\LEVODOPA
     Dosage: 1 TABLETS
     Route: 048
     Dates: start: 20230911
  5. NEUPRO [Suspect]
     Active Substance: ROTIGOTINE
     Indication: Product used for unknown indication
     Dosage: 4.5 MILLIGRAM
     Route: 062
     Dates: start: 20230829
  6. NEUPRO [Suspect]
     Active Substance: ROTIGOTINE
     Dosage: 9 MILLIGRAM
     Route: 062
     Dates: start: 20230831
  7. NEUPRO [Suspect]
     Active Substance: ROTIGOTINE
     Dosage: 4.5 MILLIGRAM
     Route: 062
  8. ASPIRIN [Concomitant]
     Active Substance: ASPIRIN
     Indication: Product used for unknown indication
     Dosage: UNK
     Route: 065
  9. MAGNESIUM OXIDE [Concomitant]
     Active Substance: MAGNESIUM OXIDE
     Indication: Product used for unknown indication
     Dosage: UNK
     Route: 065
  10. AMLODIPINE BESYLATE [Concomitant]
     Active Substance: AMLODIPINE BESYLATE
     Indication: Product used for unknown indication
     Dosage: UNK
     Route: 065
  11. HYDROCHLOROTHIAZIDE\LOSARTAN POTASSIUM [Concomitant]
     Active Substance: HYDROCHLOROTHIAZIDE\LOSARTAN POTASSIUM
     Indication: Product used for unknown indication
     Dosage: UNK
     Route: 065
  12. MENATETRENONE [Concomitant]
     Active Substance: MENATETRENONE
     Indication: Product used for unknown indication
     Dosage: UNK
     Route: 065
  13. FURSULTIAMINE HCL [Concomitant]
     Indication: Product used for unknown indication
     Dosage: UNK
     Route: 065
     Dates: start: 20230814
  14. ALLOPURINOL [Concomitant]
     Active Substance: ALLOPURINOL
     Indication: Product used for unknown indication
     Dosage: UNK
     Route: 065

REACTIONS (9)
  - Spinal compression fracture [Recovered/Resolved]
  - Delirium [Unknown]
  - Soliloquy [Unknown]
  - Delirium [Recovered/Resolved]
  - Osteoporosis [Unknown]
  - Delusion [Recovered/Resolved]
  - Hallucinations, mixed [Recovering/Resolving]
  - Hallucination [Recovered/Resolved]
  - Vitamin B1 deficiency [Recovered/Resolved]

NARRATIVE: CASE EVENT DATE: 20230101
